FAERS Safety Report 21181019 (Version 1)
Quarter: 2022Q3

REPORT INFORMATION
  Report Type: Spontaneous
  Country: US (occurrence: US)
  Receive Date: 20220806
  Receipt Date: 20220806
  Transmission Date: 20221027
  Serious: No
  Sender: FDA-Public Use
  Company Number: US-SA-SAC20220728000582

PATIENT
  Age: 41 Year
  Sex: Male
  Weight: 71.66 kg

DRUGS (4)
  1. DUPIXENT [Suspect]
     Active Substance: DUPILUMAB
     Indication: Dermatitis allergic
     Dosage: 300 MG QOW
     Route: 058
     Dates: start: 20220509
  2. VITAMIN C [Concomitant]
     Active Substance: ASCORBIC ACID
  3. IBUPROFEN [Concomitant]
     Active Substance: IBUPROFEN
  4. MAGNESIUM [Concomitant]
     Active Substance: MAGNESIUM

REACTIONS (1)
  - Product use in unapproved indication [Unknown]

NARRATIVE: CASE EVENT DATE: 20220509
